FAERS Safety Report 14227418 (Version 1)
Quarter: 2017Q4

REPORT INFORMATION
  Report Type: Spontaneous
  Country: US (occurrence: US)
  Receive Date: 20171127
  Receipt Date: 20171127
  Transmission Date: 20180321
  Serious: No
  Sender: FDA-Public Use
  Company Number: US-BAYER-2017-226092

PATIENT
  Age: 87 Year
  Sex: Male
  Weight: 63.5 kg

DRUGS (4)
  1. CRESTOR [Concomitant]
     Active Substance: ROSUVASTATIN CALCIUM
     Dosage: UNK
  2. LYRICA [Concomitant]
     Active Substance: PREGABALIN
     Indication: PAIN
     Dosage: 75 MG, TID
     Route: 048
  3. ALEVE [Suspect]
     Active Substance: NAPROXEN SODIUM
     Dosage: UNK
  4. NORCO [Concomitant]
     Active Substance: ACETAMINOPHEN\HYDROCODONE BITARTRATE
     Indication: PAIN
     Dosage: 325 MG, PRN

REACTIONS (5)
  - Balance disorder [Recovered/Resolved]
  - Anxiety [Recovered/Resolved]
  - Drug ineffective [None]
  - Drug effect incomplete [Recovered/Resolved]
  - Dizziness [Recovered/Resolved]

NARRATIVE: CASE EVENT DATE: 201706
